FAERS Safety Report 21241432 (Version 4)
Quarter: 2023Q1

REPORT INFORMATION
  Report Type: Spontaneous
  Country: FR (occurrence: FR)
  Receive Date: 20220823
  Receipt Date: 20230223
  Transmission Date: 20230417
  Serious: Yes (Death, Hospitalization, Other)
  Sender: FDA-Public Use
  Company Number: None

PATIENT
  Age: 67 Year
  Sex: Male
  Weight: 77 kg

DRUGS (1)
  1. OPDIVO [Suspect]
     Active Substance: NIVOLUMAB
     Indication: Adenocarcinoma
     Dosage: 10 MG/ML, CONCENTRATE FOR SOLUTION FOR INFUSION,?240 MG EVERY 15 DAYS. 240 MG ON 08JUL2022. 240 MG O
     Route: 042
     Dates: start: 20220707, end: 20220721

REACTIONS (2)
  - Respiratory distress [Fatal]
  - Lung disorder [Not Recovered/Not Resolved]

NARRATIVE: CASE EVENT DATE: 20220804
